FAERS Safety Report 6393178-4 (Version None)
Quarter: 2009Q4

REPORT INFORMATION
  Report Type: 
  Country: None (occurrence: None)
  Receive Date: 20091008
  Receipt Date: 20091001
  Transmission Date: 20100525
  Serious: Yes (Hospitalization)
  Sender: FDA-Public Use
  Company Number: JP-BAYER-200913684BYL

PATIENT
  Age: 73 Year
  Sex: Male

DRUGS (1)
  1. NEXAVAR [Suspect]
     Indication: RENAL CELL CARCINOMA
     Dosage: UNIT DOSE: 200 MG
     Route: 048
     Dates: start: 20090916

REACTIONS (7)
  - DECREASED APPETITE [None]
  - DIARRHOEA [None]
  - HICCUPS [None]
  - HYPERTENSION [None]
  - MALLORY-WEISS SYNDROME [None]
  - PYREXIA [None]
  - RASH GENERALISED [None]
